FAERS Safety Report 5293522-5 (Version None)
Quarter: 2007Q2

REPORT INFORMATION
  Report Type: 
  Country: None (occurrence: None)
  Receive Date: 20070411
  Receipt Date: 20070402
  Transmission Date: 20071010
  Serious: Yes (Other)
  Sender: FDA-Public Use
  Company Number: JP-JPN-A200701028

PATIENT
  Age: 12 Year
  Sex: Female
  Weight: 58 kg

DRUGS (5)
  1. RELENZA [Suspect]
     Indication: INFLUENZA
     Dosage: 5MG TWICE PER DAY
     Route: 055
     Dates: start: 20070308, end: 20070308
  2. UNKNOWN DRUG [Concomitant]
  3. ALLEGRA [Concomitant]
     Indication: ALOPECIA AREATA
     Route: 048
  4. HYDROXYZINE PAMOATE [Concomitant]
     Indication: ALOPECIA AREATA
     Route: 048
  5. CELESTONE [Concomitant]
     Indication: ALOPECIA AREATA
     Route: 048

REACTIONS (7)
  - ABNORMAL BEHAVIOUR [None]
  - COUGH [None]
  - DELIRIUM [None]
  - HEADACHE [None]
  - NAUSEA [None]
  - PYREXIA [None]
  - TREMOR [None]
